FAERS Safety Report 8816214 (Version 1)
Quarter: 2012Q4

REPORT INFORMATION
  Report Type: 
  Country: BR (occurrence: BR)
  Receive Date: 20120930
  Receipt Date: 20120930
  Transmission Date: 20130627
  Serious: Yes (Other)
  Sender: FDA-Public Use
  Company Number: BR-ELI_LILLY_AND_COMPANY-BR201209004731

PATIENT
  Age: 72 Year
  Sex: Female
  Weight: 65 kg

DRUGS (6)
  1. CYMBALTA [Suspect]
     Indication: DEPRESSION
     Dosage: 60 mg, qd
     Route: 048
     Dates: start: 20120915
  2. DIOVAN [Concomitant]
     Indication: HYPERTENSION
     Dosage: UNK, qd
     Route: 065
  3. CALTREN [Concomitant]
     Dosage: UNK, bid
     Route: 065
  4. SYNTHROID [Concomitant]
     Dosage: UNK, qd
     Route: 065
  5. RIVOTRIL [Concomitant]
     Indication: INSOMNIA
     Dosage: UNK DF, unknown
     Route: 065
  6. PANTOPRAZOL [Concomitant]
     Dosage: UNK, qd
     Route: 065

REACTIONS (12)
  - Laryngeal oedema [Unknown]
  - Hepatic pain [Unknown]
  - Hypersensitivity [Recovered/Resolved]
  - Angina pectoris [Unknown]
  - Hypertension [Unknown]
  - Tinnitus [Unknown]
  - Headache [Unknown]
  - Vomiting [Unknown]
  - Nausea [Unknown]
  - Feeling abnormal [Unknown]
  - Dizziness [Unknown]
  - Decreased appetite [Unknown]
